FAERS Safety Report 17145204 (Version 2)
Quarter: 2019Q4

REPORT INFORMATION
  Report Type: Spontaneous
  Country: CN (occurrence: CN)
  Receive Date: 20191212
  Receipt Date: 20191223
  Transmission Date: 20200122
  Serious: Yes (Hospitalization)
  Sender: FDA-Public Use
  Company Number: CN-NOVOPROD-700295

PATIENT
  Age: 51 Year
  Sex: Male
  Weight: 85 kg

DRUGS (3)
  1. NOVOLIN R [Suspect]
     Active Substance: INSULIN HUMAN
     Indication: TYPE 2 DIABETES MELLITUS
     Dosage: 28 IU, BID
     Route: 058
     Dates: start: 20160901
  2. NOVOLIN R [Suspect]
     Active Substance: INSULIN HUMAN
     Dosage: 20 IU, BID (DOSE DECREASED)
     Route: 058
  3. EMPAGLIFLOZIN [Concomitant]
     Active Substance: EMPAGLIFLOZIN
     Indication: TYPE 2 DIABETES MELLITUS
     Dosage: 1 DF, QD
     Route: 065
     Dates: start: 20191016

REACTIONS (2)
  - Weight increased [Unknown]
  - Diabetes mellitus management [Unknown]

NARRATIVE: CASE EVENT DATE: 20191010
